FAERS Safety Report 16862183 (Version 1)
Quarter: 2019Q3

REPORT INFORMATION
  Report Type: Spontaneous
  Country: KR (occurrence: KR)
  Receive Date: 20190927
  Receipt Date: 20190927
  Transmission Date: 20191005
  Serious: Yes (Other)
  Sender: FDA-Public Use
  Company Number: KR-BAYER-2019-172081

PATIENT
  Sex: Female

DRUGS (1)
  1. NEXAVAR [Suspect]
     Active Substance: SORAFENIB
     Indication: THYROID CANCER
     Dosage: UNK
     Dates: start: 2014

REACTIONS (5)
  - Arthralgia [None]
  - Musculoskeletal pain [None]
  - Rheumatoid arthritis [None]
  - Alopecia [Recovering/Resolving]
  - Pain in extremity [None]
